FAERS Safety Report 4673878-4 (Version None)
Quarter: 2005Q2

REPORT INFORMATION
  Report Type: 
  Country: None (occurrence: None)
  Receive Date: 20050525
  Receipt Date: 20050523
  Transmission Date: 20051028
  Serious: Yes (Disabling)
  Sender: FDA-Public Use
  Company Number: US-MERCK-0505USA02692

PATIENT
  Age: 87 Year
  Sex: Female

DRUGS (7)
  1. FOSAMAX [Suspect]
     Indication: OSTEOPOROSIS
     Route: 048
     Dates: start: 20050101
  2. ARICEPT [Concomitant]
     Route: 065
  3. IMDUR [Concomitant]
     Route: 065
  4. ALTACE [Concomitant]
     Route: 065
  5. ATENOLOL [Concomitant]
     Route: 065
  6. PREMARIN [Concomitant]
     Route: 065
  7. ASPIRIN [Concomitant]
     Route: 065

REACTIONS (2)
  - CHOLELITHIASIS [None]
  - CONDITION AGGRAVATED [None]
